FAERS Safety Report 20510431 (Version 3)
Quarter: 2022Q1

REPORT INFORMATION
  Report Type: Spontaneous
  Country: RU (occurrence: RU)
  Receive Date: 20220224
  Receipt Date: 20220325
  Transmission Date: 20220424
  Serious: Yes (Hospitalization, Other)
  Sender: FDA-Public Use
  Company Number: RU-AMGEN-RUSSP2022027204

PATIENT
  Age: 34 Year
  Sex: Male

DRUGS (10)
  1. FILGRASTIM [Suspect]
     Active Substance: FILGRASTIM
     Indication: Neutropenia
     Dosage: 480 MICROGRAM
     Route: 058
     Dates: start: 2019
  2. CEFTRIAXONE [Concomitant]
     Active Substance: CEFTRIAXONE
     Indication: Oropharyngeal candidiasis
     Dosage: 2 GRAM, QD
     Dates: start: 2019
  3. FLUCONAZOLE [Concomitant]
     Active Substance: FLUCONAZOLE
     Indication: Oropharyngeal candidiasis
     Dosage: 50 GRAM THEN 400 GRAM, QD
     Route: 042
     Dates: start: 2019
  4. ABACAVIR [Concomitant]
     Active Substance: ABACAVIR
     Indication: HIV infection
     Dosage: 600 MILLIGRAM, QD
     Dates: start: 2019
  5. LAMIVUDINE [Concomitant]
     Active Substance: LAMIVUDINE
     Indication: HIV infection
     Dosage: 300 MILLIGRAM, QD
     Dates: start: 2019
  6. LOPINAVIR\RITONAVIR [Concomitant]
     Active Substance: LOPINAVIR\RITONAVIR
     Indication: HIV infection
     Dosage: 400/100 MG
     Dates: start: 2019
  7. SULFAMETHOXAZOLE\TRIMETHOPRIM [Concomitant]
     Active Substance: SULFAMETHOXAZOLE\TRIMETHOPRIM
     Dosage: UNK
     Dates: start: 2019
  8. ACETAMINOPHEN [Concomitant]
     Active Substance: ACETAMINOPHEN
     Dosage: UNK
     Dates: start: 2019
  9. DICLOFENAC [Concomitant]
     Active Substance: DICLOFENAC
     Dosage: UNK
     Dates: start: 2019
  10. AZITHROMYCIN [Concomitant]
     Active Substance: AZITHROMYCIN
     Dosage: UNK

REACTIONS (14)
  - Pancytopenia [Recovering/Resolving]
  - Oesophageal candidiasis [Unknown]
  - Pneumonia [Unknown]
  - Leishmaniasis [Recovered/Resolved]
  - Neutropenia [Recovering/Resolving]
  - Hyperproteinaemia [Unknown]
  - HIV infection [Recovering/Resolving]
  - Gastritis [Unknown]
  - Oropharyngeal candidiasis [Unknown]
  - Hypoalbuminaemia [Unknown]
  - Anaemia [Recovering/Resolving]
  - Blood lactate dehydrogenase increased [Unknown]
  - Drug resistance [Unknown]
  - Drug ineffective [Unknown]

NARRATIVE: CASE EVENT DATE: 20190101
